FAERS Safety Report 22624747 (Version 1)
Quarter: 2023Q2

REPORT INFORMATION
  Report Type: Spontaneous
  Country: PL (occurrence: PL)
  Receive Date: 20230621
  Receipt Date: 20230621
  Transmission Date: 20230722
  Serious: Yes (Other)
  Sender: FDA-Public Use
  Company Number: None

PATIENT
  Age: 27 Year
  Sex: Female

DRUGS (2)
  1. HALDOL [Suspect]
     Active Substance: HALOPERIDOL
     Indication: Hallucination
     Dosage: 5 MG-0-5MG
     Route: 048
     Dates: start: 20190701, end: 20190703
  2. LORAZEPAM [Concomitant]
     Active Substance: LORAZEPAM
     Indication: Fear
     Route: 048
     Dates: start: 20190701, end: 20190701

REACTIONS (1)
  - Gaze palsy [Recovered/Resolved]

NARRATIVE: CASE EVENT DATE: 20190703
